FAERS Safety Report 9399144 (Version 1)
Quarter: 2013Q3

REPORT INFORMATION
  Report Type: Other
  Country: GB (occurrence: GB)
  Receive Date: 20130715
  Receipt Date: 20130715
  Transmission Date: 20140515
  Serious: Yes (Other)
  Sender: FDA-Public Use
  Company Number: GB-SUN PHARMACEUTICAL INDUSTRIES LTD-2013SUN00964

PATIENT
  Sex: 0

DRUGS (3)
  1. OXALIPLATIN 5MG/ML POWDER FOR SOLUTION FOR INFUSION [Suspect]
     Indication: PRODUCT USED FOR UNKNOWN INDICATION
     Dosage: UNK
     Route: 065
     Dates: start: 201303
  2. CAPECITABINE [Suspect]
     Indication: PRODUCT USED FOR UNKNOWN INDICATION
     Dosage: 1650 MG, BID
     Route: 048
     Dates: start: 20130330, end: 20130524
  3. METOCLOPRAMIDE [Concomitant]

REACTIONS (3)
  - Blister [Unknown]
  - Rash [Recovered/Resolved]
  - Vomiting [Unknown]
